FAERS Safety Report 8758871 (Version 1)
Quarter: 2012Q4

REPORT INFORMATION
  Report Type: 
  Country: BR (occurrence: BR)
  Receive Date: 20120829
  Receipt Date: 20120829
  Transmission Date: 20130627
  Serious: Yes (Death, Other)
  Sender: FDA-Public Use
  Company Number: PHHY2012BR073640

PATIENT
  Sex: Male

DRUGS (3)
  1. EXELON PATCH [Suspect]
     Indication: NERVOUS SYSTEM DISORDER
     Dosage: 4.6 mg, one patch daily
     Route: 062
     Dates: start: 201204
  2. HIGROTON [Concomitant]
     Indication: HYPERTENSION
     Dosage: 12.5 mg, daily
  3. LOSARTAN [Concomitant]
     Indication: HYPERTENSION
     Dosage: 50 mg, daily

REACTIONS (2)
  - Respiratory failure [Fatal]
  - Diabetes mellitus [Fatal]
